FAERS Safety Report 17845883 (Version 1)
Quarter: 2020Q2

REPORT INFORMATION
  Report Type: Report from Study
  Country: GB (occurrence: GB)
  Receive Date: 20200601
  Receipt Date: 20200601
  Transmission Date: 20200714
  Serious: Yes (Hospitalization)
  Sender: FDA-Public Use
  Company Number: GB-GLAXOSMITHKLINE-GB2020EME090793

PATIENT

DRUGS (1)
  1. MEPOLIZUMAB [Suspect]
     Active Substance: MEPOLIZUMAB
     Indication: ASTHMA
     Dosage: 100 MG, Z, EVERY 4 WEEK
     Route: 042

REACTIONS (6)
  - Renal disorder [Unknown]
  - Peripheral swelling [Unknown]
  - Pain [Unknown]
  - Urine flow decreased [Unknown]
  - Nocturia [Unknown]
  - Joint swelling [Unknown]
